FAERS Safety Report 7686617-X (Version None)
Quarter: 2011Q3

REPORT INFORMATION
  Report Type: 
  Country: None (occurrence: None)
  Receive Date: 20110816
  Receipt Date: 20110816
  Transmission Date: 20111222
  Serious: No
  Sender: FDA-Public Use
  Company Number: None

PATIENT
  Age: 33 Year
  Sex: Female
  Weight: 90.718 kg

DRUGS (1)
  1. LATUDA [Suspect]
     Indication: SCHIZOAFFECTIVE DISORDER
     Dosage: ONE
     Route: 048
     Dates: start: 20110811, end: 20110815

REACTIONS (2)
  - RASH [None]
  - BLISTER [None]
